FAERS Safety Report 5875816-5 (Version None)
Quarter: 2008Q3

REPORT INFORMATION
  Report Type: 
  Country: None (occurrence: None)
  Receive Date: 20080909
  Receipt Date: 20080828
  Transmission Date: 20090109
  Serious: Yes (Other)
  Sender: FDA-Public Use
  Company Number: US-PFIZER INC-2008064876

PATIENT
  Age: 48 Year
  Sex: Female
  Weight: 95.3 kg

DRUGS (10)
  1. LYRICA [Suspect]
     Indication: CERVICOBRACHIAL SYNDROME
  2. LYRICA [Suspect]
     Indication: CARPAL TUNNEL SYNDROME
  3. LYRICA [Suspect]
     Indication: PARAESTHESIA
  4. DRUG, UNSPECIFIED [Concomitant]
  5. MOTRIN [Concomitant]
  6. NAPROSYN [Concomitant]
  7. SYNTHROID [Concomitant]
  8. ESTROGENIC SUBSTANCE [Concomitant]
  9. VALIUM [Concomitant]
  10. VICODIN [Concomitant]
     Dosage: FREQ:AS NEEDED

REACTIONS (6)
  - BLOOD CHOLESTEROL INCREASED [None]
  - BLOOD TRIGLYCERIDES INCREASED [None]
  - HEPATIC ENZYME INCREASED [None]
  - HEPATOMEGALY [None]
  - NEPHROLITHIASIS [None]
  - OEDEMA PERIPHERAL [None]
